FAERS Safety Report 6988099-X (Version None)
Quarter: 2010Q3

REPORT INFORMATION
  Report Type: 
  Country: None (occurrence: None)
  Receive Date: 20100916
  Receipt Date: 20100910
  Transmission Date: 20110219
  Serious: Yes (Hospitalization)
  Sender: FDA-Public Use
  Company Number: A0881334A

PATIENT
  Sex: Male

DRUGS (3)
  1. SERETIDE [Suspect]
     Indication: BRONCHITIS
     Dosage: 1PUFF AT NIGHT
     Route: 065
     Dates: start: 20080101
  2. CAPTOPRIL [Concomitant]
     Dosage: 1TAB THREE TIMES PER DAY
     Route: 065
  3. UNSPECIFIED MEDICATIONS [Concomitant]

REACTIONS (3)
  - FATIGUE [None]
  - PRODUCTIVE COUGH [None]
  - PYREXIA [None]
